FAERS Safety Report 7476202-7 (Version None)
Quarter: 2011Q2

REPORT INFORMATION
  Report Type: 
  Country: None (occurrence: None)
  Receive Date: 20110505
  Receipt Date: 20110427
  Transmission Date: 20111010
  Serious: Yes (Death, Hospitalization, Other)
  Sender: FDA-Public Use
  Company Number: 2010AC000281

PATIENT
  Age: 82 Year
  Sex: Female
  Weight: 52.1 kg

DRUGS (56)
  1. PROTONIX [Concomitant]
  2. DOBUTAMINE HYDROCHLORIDE [Concomitant]
  3. FIORINAL [Concomitant]
  4. SOLU-MEDROL [Concomitant]
  5. WARFARIN SODIUM [Concomitant]
  6. DIGOXIN [Suspect]
     Dosage: 0.25 MG;QD;PO
     Route: 048
     Dates: start: 19900501, end: 19920201
  7. ALBUTEROL SULFATE AUTOHALER [Concomitant]
  8. ACETAMINOPHEN [Concomitant]
  9. NADOLOL [Concomitant]
  10. RANITIDINE [Concomitant]
  11. BIAXIN [Concomitant]
  12. SPIRIVA [Concomitant]
  13. PLAVIX [Concomitant]
  14. DIGIBIND [Concomitant]
  15. QUININE SULFATE [Concomitant]
  16. CARDENE [Concomitant]
  17. HYDROCORTISONE [Concomitant]
  18. VENTOLIN [Concomitant]
  19. LIDOCAINE [Concomitant]
  20. BUPROPION HCL [Concomitant]
  21. NASACORT [Concomitant]
  22. FORADIL [Concomitant]
  23. WELLBUTRIN [Concomitant]
  24. PREMARIN [Concomitant]
  25. ALDACTONE [Concomitant]
  26. NYSTATIN [Concomitant]
  27. LEVAQUIN [Concomitant]
  28. SIMVASTATIN [Concomitant]
  29. POTASSIUM CHLORIDE [Concomitant]
  30. CIPRO [Concomitant]
  31. MORPHINE [Concomitant]
  32. LOZOL [Concomitant]
  33. CAPOTEN [Concomitant]
  34. CEPHALEXIN [Concomitant]
  35. KAY CIEL DURA-TABS [Concomitant]
  36. NITROGLYCEIRN [Concomitant]
  37. ISOSORBIDE DINITRATE [Concomitant]
  38. RAMIPRIL [Concomitant]
  39. DIGOXIN [Suspect]
     Dosage: 0.25 MG;QD;PO
     Route: 048
     Dates: start: 19970701, end: 19970801
  40. AMIODARONE HCL [Concomitant]
  41. DOPAMINE HCL [Concomitant]
  42. XANAX [Concomitant]
  43. HEPARIN [Concomitant]
  44. NISOLDIPINE [Concomitant]
  45. INDAPAMIDE [Concomitant]
  46. TEQUIN [Concomitant]
  47. MOTRIN [Concomitant]
  48. ASPIRIN [Concomitant]
  49. TETANUS IMMUNE GLOBULIN (HUMAN) [Concomitant]
  50. DIGOXIN [Suspect]
     Dosage: 0.125 MG;QD;PO
     Route: 048
     Dates: start: 19920218, end: 20080410
  51. FUROSEMIDE [Concomitant]
  52. ATROPINE [Concomitant]
  53. ATIVAN [Concomitant]
  54. IV FLUIDS [Concomitant]
  55. VOLTAREN [Concomitant]
  56. PULMICORT [Concomitant]

REACTIONS (108)
  - MENTAL DISORDER [None]
  - ATRIOVENTRICULAR DISSOCIATION [None]
  - BLOOD PRESSURE INCREASED [None]
  - PAIN IN EXTREMITY [None]
  - DYSPNOEA [None]
  - CORONARY ARTERIAL STENT INSERTION [None]
  - INCREASED TENDENCY TO BRUISE [None]
  - VARICOSE VEIN [None]
  - MYOCARDIAL ISCHAEMIA [None]
  - HYPONATRAEMIA [None]
  - CHRONIC OBSTRUCTIVE PULMONARY DISEASE [None]
  - DIPLOPIA [None]
  - CEREBRAL SMALL VESSEL ISCHAEMIC DISEASE [None]
  - SINUSITIS [None]
  - OEDEMA PERIPHERAL [None]
  - DIARRHOEA [None]
  - HYDROCEPHALUS [None]
  - VENOUS INSUFFICIENCY [None]
  - WALKING AID USER [None]
  - FATIGUE [None]
  - TREATMENT NONCOMPLIANCE [None]
  - CARDIAC MURMUR [None]
  - GAIT DISTURBANCE [None]
  - NAUSEA [None]
  - OROPHARYNGEAL PAIN [None]
  - LIMB INJURY [None]
  - VENTRICULAR FIBRILLATION [None]
  - COMA [None]
  - ISCHAEMIC CARDIOMYOPATHY [None]
  - HYPERCHOLESTEROLAEMIA [None]
  - SEPTIC SHOCK [None]
  - ATRIAL FLUTTER [None]
  - TOOTH ABSCESS [None]
  - DECREASED APPETITE [None]
  - HEART RATE DECREASED [None]
  - HYPOTENSION [None]
  - RESTLESSNESS [None]
  - RENAL FAILURE [None]
  - CHEYNE-STOKES RESPIRATION [None]
  - PRURITUS [None]
  - WHEEZING [None]
  - UTERINE PROLAPSE [None]
  - CANDIDIASIS [None]
  - CONGESTIVE CARDIOMYOPATHY [None]
  - VENTRICULAR HYPOKINESIA [None]
  - MUSCULAR WEAKNESS [None]
  - HEADACHE [None]
  - DEHYDRATION [None]
  - TRANSIENT ISCHAEMIC ATTACK [None]
  - TERMINAL STATE [None]
  - ACUTE MYOCARDIAL INFARCTION [None]
  - PALPITATIONS [None]
  - VENTRICULAR EXTRASYSTOLES [None]
  - CORONARY ARTERY INSUFFICIENCY [None]
  - BACK PAIN [None]
  - PULSE ABSENT [None]
  - LEFT VENTRICULAR HYPERTROPHY [None]
  - CAROTID ARTERY STENOSIS [None]
  - WEIGHT DECREASED [None]
  - RHINITIS ALLERGIC [None]
  - INSOMNIA [None]
  - SKIN ULCER [None]
  - INCONTINENCE [None]
  - MULTIPLE INJURIES [None]
  - PAIN [None]
  - HEART RATE IRREGULAR [None]
  - ENCEPHALOMALACIA [None]
  - VENTRICULAR TACHYCARDIA [None]
  - CEREBROVASCULAR ACCIDENT [None]
  - CEREBRAL ISCHAEMIA [None]
  - CARDIAC ARREST [None]
  - ARTHRALGIA [None]
  - BALANCE DISORDER [None]
  - SINUS BRADYCARDIA [None]
  - LUNG HYPERINFLATION [None]
  - PNEUMONIA [None]
  - MOBILITY DECREASED [None]
  - BRONCHITIS [None]
  - FALL [None]
  - URINARY TRACT INFECTION [None]
  - ACTIVITIES OF DAILY LIVING IMPAIRED [None]
  - HYPOAESTHESIA [None]
  - WOUND NECROSIS [None]
  - LACERATION [None]
  - PULMONARY HYPERTENSION [None]
  - ASTHMA [None]
  - DEPRESSION [None]
  - MEMORY IMPAIRMENT [None]
  - HYPOKALAEMIA [None]
  - AZOTAEMIA [None]
  - HYPOXIA [None]
  - EMPHYSEMA [None]
  - DIZZINESS [None]
  - ATRIAL FIBRILLATION [None]
  - VAGINAL HAEMORRHAGE [None]
  - DECUBITUS ULCER [None]
  - DEPRESSED LEVEL OF CONSCIOUSNESS [None]
  - ABDOMINAL PAIN UPPER [None]
  - BLOOD POTASSIUM DECREASED [None]
  - DISCOMFORT [None]
  - TOXICITY TO VARIOUS AGENTS [None]
  - UPPER RESPIRATORY TRACT INFECTION [None]
  - ELECTROCARDIOGRAM ST SEGMENT ABNORMAL [None]
  - PULMONARY VALVE INCOMPETENCE [None]
  - ANXIETY [None]
  - LEUKOCYTOSIS [None]
  - ATELECTASIS [None]
  - CARDIAC FAILURE CONGESTIVE [None]
